FAERS Safety Report 10306506 (Version 5)
Quarter: 2014Q3

REPORT INFORMATION
  Report Type: Spontaneous
  Country: DE (occurrence: DE)
  Receive Date: 20140715
  Receipt Date: 20140903
  Transmission Date: 20150326
  Serious: Yes (Hospitalization)
  Sender: FDA-Public Use
  Company Number: DE-BRISTOL-MYERS SQUIBB COMPANY-21170824

PATIENT
  Age: 88 Year
  Sex: Male
  Weight: 82 kg

DRUGS (1)
  1. ELIQUIS [Suspect]
     Active Substance: APIXABAN
     Indication: CEREBROVASCULAR ACCIDENT PROPHYLAXIS
     Route: 048
     Dates: start: 201402, end: 20140614

REACTIONS (4)
  - Gastroenteritis norovirus [Recovered/Resolved]
  - General physical health deterioration [Recovered/Resolved]
  - Mental impairment [Recovered/Resolved]
  - Vascular dementia [Recovered/Resolved]

NARRATIVE: CASE EVENT DATE: 201402
